FAERS Safety Report 19748848 (Version 1)
Quarter: 2021Q3

REPORT INFORMATION
  Report Type: Spontaneous
  Country: GB (occurrence: GB)
  Receive Date: 20210826
  Receipt Date: 20210826
  Transmission Date: 20211014
  Serious: Yes (Disabling)
  Sender: FDA-Public Use
  Company Number: GB-PFIZER INC-202101049504

PATIENT
  Age: 36 Year
  Sex: Female
  Weight: 95.7 kg

DRUGS (1)
  1. SAYANA PRESS [Suspect]
     Active Substance: MEDROXYPROGESTERONE\MEDROXYPROGESTERONE ACETATE
     Indication: CONTRACEPTION
     Dates: start: 20210606

REACTIONS (7)
  - Contusion [Not Recovered/Not Resolved]
  - Swelling [Not Recovered/Not Resolved]
  - Loss of personal independence in daily activities [Not Recovered/Not Resolved]
  - Nodule [Unknown]
  - Dysarthria [Not Recovered/Not Resolved]
  - Pain [Not Recovered/Not Resolved]
  - Erythema nodosum [Not Recovered/Not Resolved]

NARRATIVE: CASE EVENT DATE: 20210614
